FAERS Safety Report 4917668-3 (Version None)
Quarter: 2006Q1

REPORT INFORMATION
  Report Type: 
  Country: None (occurrence: None)
  Receive Date: 20060215
  Receipt Date: 20060119
  Transmission Date: 20060701
  Serious: Yes (Hospitalization)
  Sender: FDA-Public Use
  Company Number: MEDI-0004085

PATIENT
  Age: 1 Month
  Sex: Male
  Weight: 3.6288 kg

DRUGS (2)
  1. SYNAGIS [Suspect]
     Indication: ANTIVIRAL PROPHYLAXIS
     Dosage: 1 IN 30 D, INTRAMUSCULAR
     Route: 030
     Dates: start: 20051213, end: 20051213
  2. SYNAGIS [Suspect]
     Indication: ANTIVIRAL PROPHYLAXIS
     Dosage: 1 IN 30 D, INTRAMUSCULAR
     Route: 030
     Dates: start: 20060109

REACTIONS (11)
  - CYANOSIS NEONATAL [None]
  - GASTROOESOPHAGEAL REFLUX DISEASE [None]
  - HEART RATE INCREASED [None]
  - LISTLESS [None]
  - NEONATAL ASPIRATION [None]
  - NEONATAL DISORDER [None]
  - NEONATAL INFECTION [None]
  - NEONATAL RESPIRATORY FAILURE [None]
  - NEONATAL TACHYPNOEA [None]
  - RESPIRATORY SYNCYTIAL VIRUS INFECTION [None]
  - TRACHEOMALACIA [None]
